FAERS Safety Report 9328953 (Version 2)
Quarter: 2013Q3

REPORT INFORMATION
  Report Type: Spontaneous
  Country: US (occurrence: US)
  Receive Date: 20130604
  Receipt Date: 20130716
  Transmission Date: 20140515
  Serious: No
  Sender: FDA-Public Use
  Company Number: US-ASTRAZENECA-2013SE34168

PATIENT
  Age: 67 Year
  Sex: Male
  Weight: 86.2 kg

DRUGS (4)
  1. SYMBICORT PMDI [Suspect]
     Indication: DYSPNOEA
     Dosage: 80 MCG/ 4.5 MCG, 1 PUFF BID
     Route: 055
     Dates: start: 201303
  2. SPIRIVIA [Suspect]
     Route: 055
     Dates: start: 201303
  3. AMLPODIPINE [Concomitant]
     Indication: HYPERTENSION
     Route: 048
  4. NEURONTIN [Concomitant]
     Indication: BACK PAIN
     Dosage: UNKNOWN DOSE, DAILY
     Route: 048

REACTIONS (7)
  - Dry mouth [Not Recovered/Not Resolved]
  - Nasal congestion [Not Recovered/Not Resolved]
  - Increased upper airway secretion [Not Recovered/Not Resolved]
  - Sinusitis [Not Recovered/Not Resolved]
  - Throat irritation [Not Recovered/Not Resolved]
  - Hypotension [Unknown]
  - Off label use [Unknown]
